FAERS Safety Report 7967538-1 (Version None)
Quarter: 2011Q4

REPORT INFORMATION
  Report Type: 
  Country: None (occurrence: None)
  Receive Date: 20111209
  Receipt Date: 20111129
  Transmission Date: 20120403
  Serious: Yes (Hospitalization)
  Sender: FDA-Public Use
  Company Number: US-JNJFOC-NSADSS2002016095

PATIENT
  Sex: Male

DRUGS (5)
  1. METHOTREXATE [Concomitant]
     Route: 050
  2. FOLIC ACID [Concomitant]
     Route: 048
  3. DARVOCET-N 50 [Concomitant]
     Route: 048
  4. REMICADE [Suspect]
     Route: 041
  5. REMICADE [Suspect]
     Indication: RHEUMATOID ARTHRITIS
     Route: 041
     Dates: start: 20001102, end: 20001102

REACTIONS (3)
  - HYPONATRAEMIA [None]
  - PNEUMONIA [None]
  - LEGIONELLA INFECTION [None]
